FAERS Safety Report 12114206 (Version 1)
Quarter: 2016Q1

REPORT INFORMATION
  Report Type: Spontaneous
  Country: US (occurrence: US)
  Receive Date: 20160225
  Receipt Date: 20160225
  Transmission Date: 20160526
  Serious: No
  Sender: FDA-Public Use
  Company Number: US-LANTHEUS-LMI-2015-00021

PATIENT
  Age: 92 Year
  Sex: Female
  Weight: 50.6 kg

DRUGS (7)
  1. DEFINITY [Suspect]
     Active Substance: PERFLUTREN
     Indication: ECHOCARDIOGRAM
     Dosage: UNDILUTED DEFINITY
     Route: 040
     Dates: start: 20150115, end: 20150115
  2. DEFINITY [Suspect]
     Active Substance: PERFLUTREN
     Indication: ECHOCARDIOGRAM
     Dosage: UNDILUTED DEFINITY
     Route: 040
     Dates: start: 20150115, end: 20150115
  3. ATACAND [Concomitant]
     Active Substance: CANDESARTAN CILEXETIL
  4. ZETIA [Concomitant]
     Active Substance: EZETIMIBE
  5. TOPROL XL [Concomitant]
     Active Substance: METOPROLOL SUCCINATE
  6. CLONAZEPAM. [Concomitant]
     Active Substance: CLONAZEPAM
  7. PRANDIN [Concomitant]
     Active Substance: REPAGLINIDE

REACTIONS (2)
  - Muscle spasms [Recovered/Resolved]
  - Back pain [Recovered/Resolved]

NARRATIVE: CASE EVENT DATE: 20150115
